FAERS Safety Report 7602222-5 (Version None)
Quarter: 2011Q3

REPORT INFORMATION
  Report Type: 
  Country: None (occurrence: None)
  Receive Date: 20110711
  Receipt Date: 20110630
  Transmission Date: 20111222
  Serious: Yes (Other)
  Sender: FDA-Public Use
  Company Number: US-ASTRAZENECA-2010SE15059

PATIENT
  Age: 63 Year
  Sex: Female

DRUGS (3)
  1. CRESTOR [Suspect]
     Route: 048
  2. AMLODIPINE [Concomitant]
  3. LIPITOR [Concomitant]

REACTIONS (10)
  - SYNCOPE [None]
  - MEMORY IMPAIRMENT [None]
  - DRUG DOSE OMISSION [None]
  - FALL [None]
  - MALAISE [None]
  - MENTAL IMPAIRMENT [None]
  - CAROTID ARTERY OCCLUSION [None]
  - CEREBRAL INFARCTION [None]
  - ANGIOGRAM CEREBRAL [None]
  - LIGAMENT SPRAIN [None]
